FAERS Safety Report 6547370-6 (Version None)
Quarter: 2010Q1

REPORT INFORMATION
  Report Type: 
  Country: None (occurrence: None)
  Receive Date: 20100119
  Receipt Date: 20100104
  Transmission Date: 20100710
  Serious: Yes (Other)
  Sender: FDA-Public Use
  Company Number: AMAG201000001

PATIENT
  Age: 79 Year
  Sex: Male
  Weight: 72 kg

DRUGS (6)
  1. FERAHEME [Suspect]
     Indication: IRON DEFICIENCY ANAEMIA
     Dosage: 510 MG, SINGLE, INTRAVENOUS
     Route: 042
     Dates: start: 20100102, end: 20100102
  2. OMEGA 3 FISH OIL (FISH OIL) [Concomitant]
  3. FLOMAX [Concomitant]
  4. FOLIC ACID [Concomitant]
  5. ZEMPLAR [Concomitant]
  6. ARANESP [Concomitant]

REACTIONS (5)
  - BLOOD GLUCOSE INCREASED [None]
  - FEELING ABNORMAL [None]
  - HYPOTENSION [None]
  - UNRESPONSIVE TO STIMULI [None]
  - VASCULAR GRAFT THROMBOSIS [None]
